FAERS Safety Report 5112502-3 (Version None)
Quarter: 2006Q3

REPORT INFORMATION
  Report Type: 
  Country: None (occurrence: None)
  Receive Date: 20060731
  Receipt Date: 20060611
  Transmission Date: 20061208
  Serious: No
  Sender: FDA-Public Use
  Company Number: 2006PV015623

PATIENT
  Age: 72 Year
  Sex: Female
  Weight: 53.5244 kg

DRUGS (5)
  1. BYETTA [Suspect]
     Indication: DIABETES MELLITUS
     Dosage: 5 MCG; BID;SC
     Route: 058
     Dates: start: 20060601
  2. AVANDIA [Concomitant]
  3. METFORMIN HCL [Concomitant]
  4. PROTONIX [Concomitant]
  5. MAALOX FAST BLOCKER [Concomitant]

REACTIONS (6)
  - BLOOD GLUCOSE INCREASED [None]
  - ERUCTATION [None]
  - GLYCOSYLATED HAEMOGLOBIN INCREASED [None]
  - NAUSEA [None]
  - STRESS [None]
  - WEIGHT DECREASED [None]
